FAERS Safety Report 9815942 (Version 1)
Quarter: 2014Q1

REPORT INFORMATION
  Report Type: Spontaneous
  Country: US (occurrence: US)
  Receive Date: 20140114
  Receipt Date: 20140114
  Transmission Date: 20141002
  Serious: No
  Sender: FDA-Public Use
  Company Number: US-PFIZER INC-2014009976

PATIENT
  Age: 60 Year
  Sex: Male

DRUGS (1)
  1. BOSULIF [Suspect]
     Dosage: 300 MG, 1X/DAY (100MG 3 PO QD)
     Route: 048
     Dates: start: 201306

REACTIONS (1)
  - Diarrhoea [Unknown]
